FAERS Safety Report 9053685 (Version 2)
Quarter: 2013Q1

REPORT INFORMATION
  Report Type: Spontaneous
  Country: US (occurrence: None)
  Receive Date: 20130117
  Receipt Date: 20130129
  Transmission Date: 20140127
  Serious: Yes (Death)
  Sender: FDA-Public Use
  Company Number: 2012-0694

PATIENT
  Age: 65 Year
  Sex: Female

DRUGS (1)
  1. KYPROLIS [Suspect]
     Indication: PRODUCT USED FOR UNKNOWN INDICATION
     Dates: start: 20120731

REACTIONS (2)
  - Haemoglobin decreased [None]
  - Plasma cell myeloma [None]
